FAERS Safety Report 4475467-3 (Version None)
Quarter: 2004Q4

REPORT INFORMATION
  Report Type: 
  Country: None (occurrence: None)
  Receive Date: 20041015
  Receipt Date: 20030412
  Transmission Date: 20050328
  Serious: Yes (Life-Threatening, Hospitalization)
  Sender: FDA-Public Use
  Company Number: PHBS2003BE04047

PATIENT
  Age: 47 Year
  Sex: Male

DRUGS (2)
  1. ASPIRIN [Concomitant]
  2. LESCOL XL [Suspect]
     Indication: HYPERCHOLESTEROLAEMIA
     Dosage: 80 MG/DAY
     Route: 048
     Dates: start: 20030101, end: 20030401

REACTIONS (7)
  - COUGH [None]
  - DYSPNOEA [None]
  - INFECTION [None]
  - LUNG DISORDER [None]
  - LUNG INFILTRATION [None]
  - PYREXIA [None]
  - RESPIRATORY DISORDER [None]
